FAERS Safety Report 18336275 (Version 1)
Quarter: 2020Q4

REPORT INFORMATION
  Report Type: Spontaneous
  Country: GB (occurrence: GB)
  Receive Date: 20201001
  Receipt Date: 20201001
  Transmission Date: 20210113
  Serious: Yes (Hospitalization)
  Sender: FDA-Public Use
  Company Number: GB-TEVA-2020-GB-1832324

PATIENT
  Age: 81 Year
  Sex: Female
  Weight: 56.7 kg

DRUGS (14)
  1. DOXAZOSIN [Concomitant]
     Active Substance: DOXAZOSIN MESYLATE
  2. KETOPROFEN. [Concomitant]
     Active Substance: KETOPROFEN
  3. MONTELUKAST SODIUM. [Concomitant]
     Active Substance: MONTELUKAST SODIUM
  4. ALFACALCIDOL [Concomitant]
     Active Substance: ALFACALCIDOL
  5. ATORVASTATIN [Concomitant]
     Active Substance: ATORVASTATIN
  6. WARFARIN [Suspect]
     Active Substance: WARFARIN
     Indication: ATRIAL FIBRILLATION
     Dosage: 3MG, 2MG ALTERNATE
     Route: 048
     Dates: start: 20190901, end: 20200828
  7. BISOPROLOL [Concomitant]
     Active Substance: BISOPROLOL
  8. SYMBICORT [Concomitant]
     Active Substance: BUDESONIDE\FORMOTEROL FUMARATE DIHYDRATE
  9. SALBUTAMOL [Concomitant]
     Active Substance: ALBUTEROL
     Route: 055
  10. LOSARTAN. [Concomitant]
     Active Substance: LOSARTAN
  11. PARACETAMOL [Concomitant]
     Active Substance: ACETAMINOPHEN
  12. OXYBUTYNIN. [Concomitant]
     Active Substance: OXYBUTYNIN CHLORIDE
  13. HYDRALAZINE HYDROCHLORIDE. [Concomitant]
     Active Substance: HYDRALAZINE HYDROCHLORIDE
  14. FUROSEMIDE. [Concomitant]
     Active Substance: FUROSEMIDE

REACTIONS (1)
  - Subdural haematoma [Recovering/Resolving]

NARRATIVE: CASE EVENT DATE: 20200826
